FAERS Safety Report 16845117 (Version 3)
Quarter: 2020Q2

REPORT INFORMATION
  Report Type: Spontaneous
  Country: US (occurrence: US)
  Receive Date: 20190924
  Receipt Date: 20200430
  Transmission Date: 20200713
  Serious: No
  Sender: FDA-Public Use
  Company Number: US-PFIZER INC-2019184101

PATIENT
  Age: 63 Year

DRUGS (3)
  1. LYRICA [Suspect]
     Active Substance: PREGABALIN
     Dosage: 150 MG, 4X/DAY
     Route: 048
  2. LYRICA [Suspect]
     Active Substance: PREGABALIN
     Dosage: 3 DF (3 PILLS)
  3. LYRICA [Suspect]
     Active Substance: PREGABALIN
     Dosage: 4 DF (4 PILLS)
     Dates: start: 20180101

REACTIONS (2)
  - Malaise [Unknown]
  - General physical health deterioration [Unknown]
